FAERS Safety Report 9123342 (Version 1)
Quarter: 2013Q1

REPORT INFORMATION
  Report Type: Spontaneous
  Country: US (occurrence: US)
  Receive Date: 20130115
  Receipt Date: 20130115
  Transmission Date: 20140127
  Serious: Yes (Other)
  Sender: FDA-Public Use
  Company Number: US-009507513-1301USA003314

PATIENT
  Age: 3 Year
  Sex: Male

DRUGS (1)
  1. SINGULAIR [Suspect]
     Indication: ASTHMA
     Dosage: 1 CHEWABLE TAB ON PO
     Route: 048

REACTIONS (16)
  - Initial insomnia [Unknown]
  - Aggression [Unknown]
  - Anger [Unknown]
  - Confusional state [Unknown]
  - Fatigue [Unknown]
  - Fluid intake reduced [Unknown]
  - Abnormal behaviour [Unknown]
  - Incontinence [Unknown]
  - Self injurious behaviour [Unknown]
  - Listless [Unknown]
  - Middle insomnia [Unknown]
  - Mood swings [Unknown]
  - Poor quality sleep [Unknown]
  - Psychomotor hyperactivity [Unknown]
  - Screaming [Unknown]
  - Hypophagia [Unknown]
